FAERS Safety Report 4365326-9 (Version None)
Quarter: 2004Q2

REPORT INFORMATION
  Report Type: 
  Country: None (occurrence: None)
  Receive Date: 20040520
  Receipt Date: 20040507
  Transmission Date: 20050107
  Serious: Yes (Hospitalization, Other)
  Sender: FDA-Public Use
  Company Number: 2003034487

PATIENT
  Sex: Male
  Weight: 81.6475 kg

DRUGS (4)
  1. LIPITOR [Suspect]
     Indication: BLOOD CHOLESTEROL INCREASED
     Dosage: 10 MG (DAILY), ORAL
     Route: 048
     Dates: start: 20020101, end: 20030624
  2. DILANTIN [Suspect]
     Indication: CONVULSION
     Dosage: 400 MG (DAILY), ORAL
     Route: 048
     Dates: start: 20030627, end: 20030807
  3. ZITHROMAX [Suspect]
     Indication: PHARYNGITIS
     Dosage: ORAL
     Route: 048
     Dates: start: 20030730, end: 20030803
  4. LEVOFLOXACIN [Concomitant]

REACTIONS (44)
  - ALANINE AMINOTRANSFERASE INCREASED [None]
  - ALPHA 1 GLOBULIN INCREASED [None]
  - ANTICONVULSANT TOXICITY [None]
  - APHASIA [None]
  - ARTHRALGIA [None]
  - ASPARTATE AMINOTRANSFERASE INCREASED [None]
  - BLOOD ALBUMIN DECREASED [None]
  - BLOOD CHLORIDE DECREASED [None]
  - BLOOD LACTATE DEHYDROGENASE INCREASED [None]
  - BLOOD POTASSIUM DECREASED [None]
  - BLOOD SODIUM DECREASED [None]
  - BLOOD TRIGLYCERIDES INCREASED [None]
  - DERMATITIS EXFOLIATIVE [None]
  - DRUG HYPERSENSITIVITY [None]
  - DRUG INEFFECTIVE [None]
  - DYSPNOEA EXERTIONAL [None]
  - ELECTROPHORESIS PROTEIN ABNORMAL [None]
  - EOSINOPHIL COUNT INCREASED [None]
  - GAMMA-GLUTAMYLTRANSFERASE INCREASED [None]
  - GRAND MAL CONVULSION [None]
  - HAEMATOCRIT DECREASED [None]
  - HAEMATOMA [None]
  - HAEMOGLOBIN DECREASED [None]
  - HEPATOCELLULAR DAMAGE [None]
  - HIGH DENSITY LIPOPROTEIN DECREASED [None]
  - INJURY [None]
  - INTERNATIONAL NORMALISED RATIO INCREASED [None]
  - LOW DENSITY LIPOPROTEIN INCREASED [None]
  - LYMPHOCYTE COUNT DECREASED [None]
  - MONOCYTE COUNT INCREASED [None]
  - NEUTROPHIL COUNT INCREASED [None]
  - PCO2 DECREASED [None]
  - PHARYNGITIS STREPTOCOCCAL [None]
  - POST PROCEDURAL COMPLICATION [None]
  - PROCEDURAL COMPLICATION [None]
  - PROTEIN TOTAL DECREASED [None]
  - RASH GENERALISED [None]
  - RED CELL DISTRIBUTION WIDTH INCREASED [None]
  - SIMPLE PARTIAL SEIZURES [None]
  - SINUS POLYP [None]
  - SWELLING FACE [None]
  - THYROXINE DECREASED [None]
  - TOTAL CHOLESTEROL/HDL RATIO DECREASED [None]
  - WHITE BLOOD CELL COUNT DECREASED [None]
